FAERS Safety Report 7214662-7 (Version None)
Quarter: 2010Q4

REPORT INFORMATION
  Report Type: 
  Country: None (occurrence: None)
  Receive Date: 20101126
  Receipt Date: 20100624
  Transmission Date: 20110411
  Serious: Yes (Other)
  Sender: FDA-Public Use
  Company Number: CIP07002793

PATIENT
  Age: 66 Year
  Sex: Female

DRUGS (15)
  1. ACTONEL [Suspect]
     Dosage: ORAL
     Route: 048
     Dates: start: 20050720, end: 20060620
  2. PREDNISONE TAB [Suspect]
     Indication: RHEUMATOID ARTHRITIS
     Dosage: SEE IMAGE
     Route: 048
     Dates: start: 20070423, end: 20070604
  3. PREDNISONE TAB [Suspect]
     Indication: RHEUMATOID ARTHRITIS
     Dosage: SEE IMAGE
     Route: 048
     Dates: start: 20040525
  4. PREDNISONE TAB [Suspect]
     Indication: RHEUMATOID ARTHRITIS
     Dosage: SEE IMAGE
     Route: 048
     Dates: start: 20050415
  5. PREDNISONE TAB [Suspect]
     Indication: RHEUMATOID ARTHRITIS
     Dosage: SEE IMAGE
     Route: 048
     Dates: start: 20051028
  6. PREDNISONE TAB [Suspect]
     Indication: RHEUMATOID ARTHRITIS
     Dosage: SEE IMAGE
     Route: 048
     Dates: start: 20060710
  7. PREDNISONE TAB [Suspect]
     Indication: RHEUMATOID ARTHRITIS
     Dosage: SEE IMAGE
     Route: 048
     Dates: start: 20060814
  8. HYDROCHLOROTHIAZIDE [Concomitant]
  9. ASPIRIN [Concomitant]
  10. ASCORBIC ACID [Concomitant]
  11. VITAMINS NOS (VITAMINS NOS) [Concomitant]
  12. PLAQUENIL /00072601/ (HYDROXYCHLOROQUINE) [Concomitant]
  13. GLUCOSAMINE + CHONDROITIN (GLUCOSAMINE, CHONDROITIN SULFATE) [Concomitant]
  14. CALCIUM (CALCIUM) [Concomitant]
  15. LEFLUNOMIDE [Concomitant]

REACTIONS (15)
  - ABSCESS JAW [None]
  - APHTHOUS STOMATITIS [None]
  - CELLULITIS [None]
  - ERYTHEMA [None]
  - FACIAL PAIN [None]
  - GINGIVITIS ULCERATIVE [None]
  - JAW DISORDER [None]
  - JOINT RANGE OF MOTION DECREASED [None]
  - LOOSE TOOTH [None]
  - OSTEOMYELITIS [None]
  - OSTEONECROSIS OF JAW [None]
  - PRIMARY SEQUESTRUM [None]
  - PURULENT DISCHARGE [None]
  - RED BLOOD CELL SEDIMENTATION RATE INCREASED [None]
  - VIITH NERVE PARALYSIS [None]
